FAERS Safety Report 9549456 (Version 1)
Quarter: 2013Q2

REPORT INFORMATION
  Report Type: Spontaneous
  Country: US (occurrence: None)
  Receive Date: 20130627
  Receipt Date: 20130627
  Transmission Date: 20140414
  Serious: No
  Sender: FDA-Public Use
  Company Number: 1000043944

PATIENT
  Age: 69 Year
  Sex: Female

DRUGS (12)
  1. LINZESS (LINACLOTIDE) (145 MICROGRAM, CAPSULES) [Suspect]
     Indication: IRRITABLE BOWEL SYNDROME
     Route: 048
     Dates: start: 20130224
  2. LINZESS (LINACLOTIDE) (145 MICROGRAM, CAPSULES) [Suspect]
     Indication: CONSTIPATION
     Route: 048
     Dates: start: 20130224
  3. VITAMINE C (ASCORBIC ACID) [Suspect]
     Dates: start: 20130224
  4. NEXIUM [Concomitant]
  5. RAMIPRIL [Concomitant]
  6. DIOVAN (VALSARTAN) [Concomitant]
  7. AMITRIPTYLINE [Concomitant]
  8. CRESTOR (ROSUVASTATIN CALCIUM) [Concomitant]
  9. LEVOTHYROXINE (LEVOTHYROXINE SODIUM) [Concomitant]
  10. METFORMIN [Concomitant]
  11. GELNIQUE (OXYBUTYNIN HYDROCHLORIDE) [Concomitant]
  12. MTV (VITAMINS NOS) [Concomitant]

REACTIONS (1)
  - Oral discomfort [None]
